FAERS Safety Report 9196581 (Version 1)
Quarter: 2013Q1

REPORT INFORMATION
  Report Type: Spontaneous
  Country: JP (occurrence: JP)
  Receive Date: 20130328
  Receipt Date: 20130328
  Transmission Date: 20140127
  Serious: Yes (Hospitalization)
  Sender: FDA-Public Use
  Company Number: JP-AMGEN-JPNSP2013020571

PATIENT
  Age: 79 Year
  Sex: Male

DRUGS (13)
  1. RANMARK [Suspect]
     Indication: METASTASES TO BONE
     Dosage: 120 MG, UNK
     Route: 058
     Dates: start: 20120123
  2. ALFAROL [Suspect]
     Dosage: UNKNOWN
     Route: 065
     Dates: start: 20130123
  3. ASPARA [Suspect]
     Dosage: UNKNOWN
     Route: 065
     Dates: start: 20130123
  4. ZOMETA [Concomitant]
     Dosage: UNKNOWN
     Route: 065
     Dates: start: 20100201, end: 20130123
  5. REZALTAS(OLMESARTAN MEDOXOMIL/AZELNIDIPINE) [Concomitant]
     Dosage: UNKNOWN
     Route: 065
  6. MEVARICH [Concomitant]
     Dosage: UNKNOWN
     Route: 065
  7. SHAKUYAKUKANZOUTOU [Concomitant]
     Dosage: UNKNOWN
     Route: 065
  8. SEIBULE [Concomitant]
     Dosage: UNKNOWN
     Route: 065
  9. EQUA [Concomitant]
     Dosage: UNKNOWN
     Route: 065
  10. SHOUSEIRYUUTOU [Concomitant]
     Dosage: UNKNOWN
     Route: 065
  11. DECADRON [Concomitant]
     Dosage: UNKNOWN
     Route: 065
  12. FAMOTIDINE D [Concomitant]
     Dosage: UNKNOWN
     Route: 065
  13. UFT E [Concomitant]
     Dosage: UNKNOWN
     Route: 065

REACTIONS (2)
  - Hypercalcaemia [Recovered/Resolved]
  - Asthenia [None]
